FAERS Safety Report 11551810 (Version 1)
Quarter: 2015Q3

REPORT INFORMATION
  Report Type: Spontaneous
  Country: US (occurrence: US)
  Receive Date: 20150903
  Receipt Date: 20150903
  Transmission Date: 20151125
  Serious: No
  Sender: FDA-Public Use
  Company Number: US-ELI_LILLY_AND_COMPANY-US201005003577

PATIENT
  Age: 70 Year
  Sex: Male

DRUGS (2)
  1. GLUCOPHAGE [Concomitant]
     Active Substance: METFORMIN HYDROCHLORIDE
     Route: 048
     Dates: end: 20100506
  2. HUMALOG [Suspect]
     Active Substance: INSULIN LISPRO
     Dosage: 5 U, EACH MORNING
     Dates: start: 20100506

REACTIONS (1)
  - Blood glucose increased [Not Recovered/Not Resolved]

NARRATIVE: CASE EVENT DATE: 20100506
